FAERS Safety Report 15533769 (Version 1)
Quarter: 2018Q4

REPORT INFORMATION
  Report Type: Spontaneous
  Country: TW (occurrence: TW)
  Receive Date: 20181019
  Receipt Date: 20181019
  Transmission Date: 20190205
  Serious: Yes (Other)
  Sender: FDA-Public Use
  Company Number: TW-SA-2018SA288225

PATIENT
  Age: 70 Year
  Sex: Male

DRUGS (4)
  1. CISPLATIN. [Concomitant]
     Active Substance: CISPLATIN
     Indication: PRODUCT USED FOR UNKNOWN INDICATION
     Dosage: 80 MG, Q3W
     Dates: start: 20180807, end: 20180807
  2. TAXOTERE [Suspect]
     Active Substance: DOCETAXEL
     Indication: PRODUCT USED FOR UNKNOWN INDICATION
     Dosage: 105 MG/M2, Q3W
     Route: 042
     Dates: start: 20180807, end: 20180807
  3. TAXOTERE [Suspect]
     Active Substance: DOCETAXEL
     Dosage: 105 MG, Q3W
     Route: 042
     Dates: start: 20180830, end: 20180830
  4. CISPLATIN. [Concomitant]
     Active Substance: CISPLATIN
     Dosage: 80 MG, Q3W
     Route: 042
     Dates: start: 20180830, end: 20180830

REACTIONS (2)
  - Rash [Recovering/Resolving]
  - Dissociation [Recovering/Resolving]

NARRATIVE: CASE EVENT DATE: 20180830
